FAERS Safety Report 19454694 (Version 3)
Quarter: 2021Q3

REPORT INFORMATION
  Report Type: Spontaneous
  Country: NL (occurrence: NL)
  Receive Date: 20210623
  Receipt Date: 20210916
  Transmission Date: 20211014
  Serious: Yes (Other)
  Sender: FDA-Public Use
  Company Number: NL-MYLANLABS-2021M1036954

PATIENT
  Age: 71 Year
  Sex: Female

DRUGS (11)
  1. DEXAMETHASONE. [Suspect]
     Active Substance: DEXAMETHASONE
     Indication: HYPERVISCOSITY SYNDROME
     Dosage: UNK
  2. IXAZOMIB [Suspect]
     Active Substance: IXAZOMIB
     Indication: HYPERVISCOSITY SYNDROME
     Dosage: UNK
  3. SALINE                             /00075401/ [Suspect]
     Active Substance: SODIUM CHLORIDE
     Indication: PLASMA CELL MYELOMA
     Dosage: 5% ALBUMIN, 0.9% SALINE WITH A PRESCRIBED VOLUME OF 50 TO 60 ML/KG BODY WEIGHT OF PLASMA REMOVAL
     Route: 065
  4. ALBUMIN [Suspect]
     Active Substance: ALBUMIN HUMAN
     Indication: PLASMA CELL MYELOMA
  5. THALIDOMIDE [Suspect]
     Active Substance: THALIDOMIDE
     Indication: PLASMA CELL MYELOMA
     Dosage: 100 MILLIGRAM ((ON DAYS1?21 OF 28 DAY CYCLE))
     Route: 065
  6. ALBUMIN [Suspect]
     Active Substance: ALBUMIN HUMAN
     Indication: HYPERVISCOSITY SYNDROME
     Dosage: UNK
  7. DEXAMETHASONE. [Suspect]
     Active Substance: DEXAMETHASONE
     Indication: PLASMA CELL MYELOMA
     Dosage: 40 MILLIGRAM, QW (40 MILLIGRAM, 1/WEEK)
     Route: 065
  8. THALIDOMIDE [Suspect]
     Active Substance: THALIDOMIDE
     Indication: HYPERVISCOSITY SYNDROME
     Dosage: UNK
  9. SALINE                             /00075401/ [Suspect]
     Active Substance: SODIUM CHLORIDE
     Indication: HYPERVISCOSITY SYNDROME
     Dosage: UNK
  10. IXAZOMIB [Suspect]
     Active Substance: IXAZOMIB
     Indication: PLASMA CELL MYELOMA
     Dosage: 9 MONTHLY CYCLES OF IXAZOMIB (ON DAYS 1, 8,15 OF 28?DAY CYCLE)
     Route: 048
  11. ALBUMIN [Suspect]
     Active Substance: ALBUMIN HUMAN
     Indication: PLASMA CELL MYELOMA
     Dosage: 5% ALBUMIN, 0.9% SALINE WITH A PRESCRIBED VOLUME OF 50 TO 60 ML/KG BODY WEIGHT PLASMA REMOVAL
     Route: 065

REACTIONS (3)
  - Nausea [Unknown]
  - Polyneuropathy [Unknown]
  - Off label use [Unknown]
